FAERS Safety Report 21341637 (Version 1)
Quarter: 2022Q3

REPORT INFORMATION
  Report Type: Spontaneous
  Country: TW (occurrence: TW)
  Receive Date: 20220916
  Receipt Date: 20220916
  Transmission Date: 20221026
  Serious: Yes (Death, Other)
  Sender: FDA-Public Use
  Company Number: TW-ASTELLAS-2021US040705

PATIENT
  Age: 67 Year
  Sex: Male

DRUGS (3)
  1. LEUPROLIDE ACETATE [Suspect]
     Active Substance: LEUPROLIDE ACETATE
     Indication: Prostate cancer metastatic
     Dosage: UNK UNK, UNKNOWN FREQ.
     Route: 058
  2. ENZALUTAMIDE [Suspect]
     Active Substance: ENZALUTAMIDE
     Indication: Prostate cancer metastatic
     Dosage: UNK UNK, UNKNOWN FREQ.
     Route: 065
  3. DOCETAXEL [Concomitant]
     Active Substance: DOCETAXEL
     Indication: Prostate cancer metastatic
     Dosage: 75 MG/M2, EVERY 3 WEEKS (TOTAL 130MG)
     Route: 065

REACTIONS (5)
  - Prostate cancer [Fatal]
  - Hepatic failure [Fatal]
  - Bone pain [Unknown]
  - Macroenzyme creatine kinase [Unknown]
  - Drug ineffective [Unknown]
